FAERS Safety Report 14227132 (Version 1)
Quarter: 2017Q4

REPORT INFORMATION
  Report Type: Spontaneous
  Country: US (occurrence: None)
  Receive Date: 20171127
  Receipt Date: 20171127
  Transmission Date: 20180321
  Serious: Yes (Other)
  Sender: FDA-Public Use
  Company Number: None

PATIENT
  Age: 53 Year
  Sex: Female

DRUGS (15)
  1. HYDROXYCHLOROQUINE [Concomitant]
     Active Substance: HYDROXYCHLOROQUINE
  2. SULFASALAZINE. [Concomitant]
     Active Substance: SULFASALAZINE
  3. OXYBUTYNIN. [Concomitant]
     Active Substance: OXYBUTYNIN CHLORIDE
  4. HUMALOG MIX [Concomitant]
     Active Substance: INSULIN LISPRO
  5. DEPAKOTE [Concomitant]
     Active Substance: DIVALPROEX SODIUM
  6. QUIETIPINE TAB 300MG [Suspect]
     Active Substance: QUETIAPINE FUMARATE
     Indication: BIPOLAR DISORDER
     Route: 048
     Dates: start: 2015, end: 20170618
  7. TRAZODONE [Concomitant]
     Active Substance: TRAZODONE HYDROCHLORIDE
  8. VITAMIN B12 [Concomitant]
     Active Substance: CYANOCOBALAMIN
  9. OMEPRAZOLE. [Concomitant]
     Active Substance: OMEPRAZOLE
  10. TRAZODONE [Suspect]
     Active Substance: TRAZODONE HYDROCHLORIDE
     Indication: SLEEP DISORDER
     Dosage: 100MG 1/2 TO 1 TAB AT BEDTIME BY MOUTH AS NEEDED
     Route: 048
     Dates: start: 2002
  11. GABAPENTIN. [Concomitant]
     Active Substance: GABAPENTIN
  12. MEGA FOOD VITAMIN [Concomitant]
  13. MECLIZINE [Concomitant]
     Active Substance: MECLIZINE HYDROCHLORIDE
  14. ATIVAN [Concomitant]
     Active Substance: LORAZEPAM
  15. ARIPIPRAZOLE. [Concomitant]
     Active Substance: ARIPIPRAZOLE

REACTIONS (5)
  - Feeling abnormal [None]
  - Dyspnoea [None]
  - Palpitations [None]
  - Asthenia [None]
  - Dizziness [None]
